FAERS Safety Report 20780839 (Version 1)
Quarter: 2022Q2

REPORT INFORMATION
  Report Type: Spontaneous
  Country: NL (occurrence: NL)
  Receive Date: 20220504
  Receipt Date: 20220504
  Transmission Date: 20220721
  Serious: Yes (Other)
  Sender: FDA-Public Use
  Company Number: NL-SUN PHARMACEUTICAL INDUSTRIES LTD-2022R1-334826

PATIENT
  Age: 8 Year
  Sex: Male

DRUGS (1)
  1. DEXAMETHASONE [Suspect]
     Active Substance: DEXAMETHASONE
     Indication: Oedema
     Dosage: 3.5 MILLIGRAM, DAILY, 2 MG IN THE MORNING AND 1.5 MG IN THE EVENING
     Route: 048

REACTIONS (1)
  - Neuropsychiatric symptoms [Unknown]
